FAERS Safety Report 5964231-1 (Version None)
Quarter: 2008Q4

REPORT INFORMATION
  Report Type: 
  Country: None (occurrence: None)
  Receive Date: 20081124
  Receipt Date: 20081114
  Transmission Date: 20090506
  Serious: Yes (Hospitalization)
  Sender: FDA-Public Use
  Company Number: IT-PFIZER INC-2008096757

PATIENT
  Sex: Female

DRUGS (3)
  1. SOLU-MEDROL [Suspect]
     Indication: MULTIPLE SCLEROSIS RELAPSE
     Route: 042
     Dates: start: 20080904, end: 20080906
  2. REBIF [Suspect]
     Indication: MULTIPLE SCLEROSIS
     Dosage: TEXT:22 MCG/KG CYCLIC EVERY OTHER DAY
     Route: 058
     Dates: start: 20040101, end: 20081022
  3. TACHIPIRINA [Suspect]
     Indication: INFLUENZA
     Dosage: DAILY DOSE:1500MG
     Route: 048
     Dates: start: 20081018, end: 20081019

REACTIONS (2)
  - HEPATITIS TOXIC [None]
  - JAUNDICE [None]
